FAERS Safety Report 15074026 (Version 1)
Quarter: 2018Q2

REPORT INFORMATION
  Report Type: Spontaneous
  Country: US (occurrence: US)
  Receive Date: 20180627
  Receipt Date: 20180627
  Transmission Date: 20180711
  Serious: Yes (Hospitalization)
  Sender: FDA-Public Use
  Company Number: US-WEST-WARD PHARMACEUTICALS CORP.-US-H14001-18-05141

PATIENT
  Age: 68 Year
  Sex: Male
  Weight: 96.5 kg

DRUGS (7)
  1. LEVOTHYROXINE. [Concomitant]
     Active Substance: LEVOTHYROXINE
     Indication: HYPERTHYROIDISM
     Route: 065
     Dates: start: 20150811
  2. MYCOPHENOLATE MOFETIL. [Suspect]
     Active Substance: MYCOPHENOLATE MOFETIL
     Indication: HEPATIC ENZYME INCREASED
     Route: 048
     Dates: start: 20180424
  3. POTASSIUM [Concomitant]
     Active Substance: POTASSIUM
     Indication: HYPOKALAEMIA
     Route: 065
     Dates: start: 20160216
  4. AXITINIB [Suspect]
     Active Substance: AXITINIB
     Indication: RENAL CELL CARCINOMA
     Route: 048
     Dates: start: 20150630, end: 20180403
  5. MK-3475 [Suspect]
     Active Substance: PEMBROLIZUMAB
     Indication: RENAL CELL CARCINOMA
     Route: 042
     Dates: start: 20150630, end: 20171212
  6. AMLODIPINE [Concomitant]
     Active Substance: AMLODIPINE BESYLATE
     Indication: HYPERTENSION
     Route: 065
     Dates: start: 20160524
  7. PREDNISONE. [Suspect]
     Active Substance: PREDNISONE
     Indication: HEPATIC ENZYME INCREASED
     Route: 048
     Dates: start: 20180403

REACTIONS (6)
  - Off label use [Unknown]
  - Leukocytosis [Unknown]
  - Tachycardia [Unknown]
  - Wound infection staphylococcal [Unknown]
  - Cellulitis [Recovered/Resolved]
  - Wound infection pseudomonas [Unknown]

NARRATIVE: CASE EVENT DATE: 20180524
